FAERS Safety Report 15802957 (Version 1)
Quarter: 2018Q4

REPORT INFORMATION
  Report Type: Spontaneous
  Country: US (occurrence: US)
  Receive Date: 20181213
  Receipt Date: 20181213
  Transmission Date: 20190205
  Serious: No
  Sender: FDA-Public Use
  Company Number: None

PATIENT
  Age: 64 Year
  Sex: Female

DRUGS (4)
  1. CAPECITABINE TAB 500 MG [Suspect]
     Active Substance: CAPECITABINE
     Route: 048
     Dates: start: 20180830
  2. LYRICA [Concomitant]
     Active Substance: PREGABALIN
  3. GLIPIZIDE. [Concomitant]
     Active Substance: GLIPIZIDE
  4. AMLODIPINE [Concomitant]
     Active Substance: AMLODIPINE BESYLATE

REACTIONS (2)
  - Skin discolouration [None]
  - Muscle spasms [None]

NARRATIVE: CASE EVENT DATE: 20181205
